FAERS Safety Report 10149055 (Version 1)
Quarter: 2014Q2

REPORT INFORMATION
  Report Type: Spontaneous
  Country: AU (occurrence: AU)
  Receive Date: 20140502
  Receipt Date: 20140502
  Transmission Date: 20141212
  Serious: Yes (Death)
  Sender: FDA-Public Use
  Company Number: AU-JNJFOC-20140414999

PATIENT
  Age: 86 Year
  Sex: Female

DRUGS (3)
  1. FENTANYL [Suspect]
     Indication: PRODUCT USED FOR UNKNOWN INDICATION
     Route: 062
     Dates: start: 20100901
  2. METHOXYFLURANE [Suspect]
     Indication: PAIN PROPHYLAXIS
     Route: 065
     Dates: start: 20100901
  3. TELMISARTAN [Suspect]
     Indication: HYPERTENSION
     Route: 065

REACTIONS (2)
  - Anaphylactic reaction [Fatal]
  - Confusional state [Unknown]
